FAERS Safety Report 8011080-9 (Version None)
Quarter: 2011Q4

REPORT INFORMATION
  Report Type: 
  Country: None (occurrence: None)
  Receive Date: 20111228
  Receipt Date: 20111219
  Transmission Date: 20120403
  Serious: Yes (Hospitalization, Other)
  Sender: FDA-Public Use
  Company Number: BE-B.I. PHARMACEUTICALS,INC./RIDGEFIELD-2011-BL-00290BL

PATIENT
  Sex: Male
  Weight: 96 kg

DRUGS (4)
  1. ALLOPURINOL [Concomitant]
  2. PRADAXA [Suspect]
     Indication: ATRIAL FIBRILLATION
     Dosage: 220 MG
     Dates: start: 20111013, end: 20111101
  3. CO-BISOPROLOL [Concomitant]
  4. BIO FER [Concomitant]

REACTIONS (2)
  - POST PROCEDURAL HAEMORRHAGE [None]
  - HEPATIC CIRRHOSIS [None]
